FAERS Safety Report 22205632 (Version 13)
Quarter: 2024Q1

REPORT INFORMATION
  Report Type: Spontaneous
  Country: US (occurrence: US)
  Receive Date: 20230413
  Receipt Date: 20240209
  Transmission Date: 20240409
  Serious: No
  Sender: FDA-Public Use
  Company Number: US-PFIZER INC-PV202300060134

PATIENT
  Age: 13 Year
  Sex: Male
  Weight: 44.91 kg

DRUGS (1)
  1. GENOTROPIN [Suspect]
     Active Substance: SOMATROPIN
     Dosage: 1.4 MG, DAILY (7 DAYS A WEEK)
     Dates: start: 20230327

REACTIONS (7)
  - Injection site pain [Unknown]
  - Poor quality product administered [Unknown]
  - Wrong technique in device usage process [Unknown]
  - Drug dose omission by device [Unknown]
  - Device use issue [Unknown]
  - Device physical property issue [Unknown]
  - Device malfunction [Unknown]
